FAERS Safety Report 14119810 (Version 1)
Quarter: 2017Q4

REPORT INFORMATION
  Report Type: Spontaneous
  Country: US (occurrence: US)
  Receive Date: 20171024
  Receipt Date: 20171024
  Transmission Date: 20180321
  Serious: No
  Sender: FDA-Public Use
  Company Number: US-ASTRAZENECA-2017SF05840

PATIENT
  Age: 45 Year
  Sex: Female
  Weight: 79.8 kg

DRUGS (1)
  1. BYETTA [Suspect]
     Active Substance: EXENATIDE
     Indication: TYPE 2 DIABETES MELLITUS
     Dosage: 250 MCG/1.2 ML, 5 MCG, TWO TIMES A DAY
     Route: 058
     Dates: start: 20170921, end: 20171005

REACTIONS (5)
  - Injection site pruritus [Recovered/Resolved]
  - Urticaria [Not Recovered/Not Resolved]
  - Drug dose omission [Unknown]
  - Injection site bruising [Not Recovered/Not Resolved]
  - Product quality issue [Unknown]

NARRATIVE: CASE EVENT DATE: 2017
